FAERS Safety Report 8120107-5 (Version None)
Quarter: 2012Q1

REPORT INFORMATION
  Report Type: 
  Country: None (occurrence: None)
  Receive Date: 20120207
  Receipt Date: 20120127
  Transmission Date: 20120608
  Serious: Yes (Death, Hospitalization)
  Sender: FDA-Public Use
  Company Number: US-ACTELION-A-US2012-59327

PATIENT

DRUGS (4)
  1. TRACLEER [Suspect]
     Indication: PULMONARY ARTERIAL HYPERTENSION
     Dosage: UNK MG, UNK
     Route: 048
     Dates: start: 20060824, end: 20120101
  2. REVATIO [Concomitant]
  3. AMIODARONE [Concomitant]
  4. TIKOSYN [Concomitant]

REACTIONS (4)
  - DEATH [None]
  - BLOOD POTASSIUM INCREASED [None]
  - HEART RATE IRREGULAR [None]
  - DEHYDRATION [None]
